FAERS Safety Report 4338017-8 (Version None)
Quarter: 2004Q2

REPORT INFORMATION
  Report Type: 
  Country: None (occurrence: None)
  Receive Date: 20040408
  Receipt Date: 20040325
  Transmission Date: 20050107
  Serious: Yes (Disabling)
  Sender: FDA-Public Use
  Company Number: UK070417

PATIENT
  Age: 3 Year
  Sex: Female

DRUGS (18)
  1. NEUPOGEN [Suspect]
     Indication: CHEMOTHERAPY
     Dosage: IV
     Route: 042
     Dates: start: 20030621, end: 20030625
  2. CYTARABINE [Suspect]
     Dosage: IV
     Route: 042
     Dates: start: 20030620, end: 20030625
  3. AMPHOTERICIN B [Suspect]
     Dosage: IV
     Route: 042
     Dates: start: 20030623, end: 20030625
  4. FLUDARABINE PHOSPHATE [Suspect]
     Dosage: 50 MG, IV
     Route: 042
     Dates: start: 20030621, end: 20030625
  5. TRIMETHOPRIM-SULFAMETHOXAZOLE [Concomitant]
  6. ZOPHREN [Concomitant]
  7. CEFTAZIDIME [Concomitant]
  8. AMIKACIN [Concomitant]
  9. VANCOMYCIN [Concomitant]
  10. ACETAMINOPHEN [Concomitant]
  11. URATE OXIDASE [Concomitant]
  12. DAUNORUBICIN [Concomitant]
  13. HEPARIN [Concomitant]
  14. DEXAMETHASONE SODIUM PHOSPHATE [Concomitant]
  15. DEXCHLORPHENIRAMINE MALEATE [Concomitant]
  16. ALIZAPRIDE HYDROCHLORIDE [Concomitant]
  17. NICARDIPINE HYDROCHLORIDE [Concomitant]
  18. ARTIFICIAL TEARS [Concomitant]

REACTIONS (6)
  - BLINDNESS [None]
  - ELECTROENCEPHALOGRAM ABNORMAL [None]
  - ENCEPHALITIS VIRAL [None]
  - MENINGEAL DISORDER [None]
  - NECROSIS [None]
  - OPTIC NERVE DISORDER [None]
